FAERS Safety Report 6675207-3 (Version None)
Quarter: 2010Q2

REPORT INFORMATION
  Report Type: 
  Country: None (occurrence: None)
  Receive Date: 20100409
  Receipt Date: 20100329
  Transmission Date: 20101027
  Serious: Yes (Other)
  Sender: FDA-Public Use
  Company Number: US-PFIZER INC-2010032226

PATIENT
  Sex: Female
  Weight: 48.073 kg

DRUGS (4)
  1. ZOLOFT [Suspect]
     Indication: ANXIETY
     Dosage: 12.5 MG, UNK
     Route: 048
     Dates: start: 20100123, end: 20100301
  2. ZOLOFT [Suspect]
     Indication: TIC
  3. ZOFRAN [Concomitant]
     Dosage: UNK
  4. INDOMETHACIN [Concomitant]
     Dosage: UNK

REACTIONS (8)
  - ANXIETY [None]
  - ARRHYTHMIA [None]
  - BONE PAIN [None]
  - MIGRAINE [None]
  - MUSCLE TWITCHING [None]
  - NAUSEA [None]
  - PARAESTHESIA [None]
  - WITHDRAWAL SYNDROME [None]
